FAERS Safety Report 19189916 (Version 1)
Quarter: 2021Q2

REPORT INFORMATION
  Report Type: Report from Study
  Country: None (occurrence: US)
  Receive Date: 20210428
  Receipt Date: 20210428
  Transmission Date: 20210717
  Serious: Yes (Hospitalization, Other)
  Sender: FDA-Public Use
  Company Number: US-ABBVIE-21K-163-3871782-00

PATIENT
  Age: 40 Year
  Sex: Female

DRUGS (1)
  1. RINVOQ [Suspect]
     Active Substance: UPADACITINIB
     Indication: RHEUMATOID ARTHRITIS
     Route: 048

REACTIONS (12)
  - Dyspnoea [Unknown]
  - Arthralgia [Unknown]
  - Post procedural swelling [Unknown]
  - Post procedural complication [Unknown]
  - Post procedural infection [Unknown]
  - Erythema [Unknown]
  - Hyperhidrosis [Unknown]
  - Post procedural sepsis [Unknown]
  - Procedural pain [Unknown]
  - Knee operation [Recovered/Resolved]
  - Thrombosis [Unknown]
  - Headache [Unknown]

NARRATIVE: CASE EVENT DATE: 2021
